FAERS Safety Report 5299072-4 (Version None)
Quarter: 2007Q2

REPORT INFORMATION
  Report Type: 
  Country: None (occurrence: None)
  Receive Date: 20070412
  Receipt Date: 20070412
  Transmission Date: 20071010
  Serious: Yes (Other)
  Sender: FDA-Public Use
  Company Number: None

PATIENT
  Age: 7 Year
  Sex: Male
  Weight: 27 kg

DRUGS (3)
  1. MERCAPTOPURINE [Suspect]
     Indication: ACUTE LYMPHOCYTIC LEUKAEMIA
     Dosage: 75 MG DAILY PO
     Route: 048
  2. MERCAPTOPURINE [Suspect]
     Indication: ACUTE LYMPHOCYTIC LEUKAEMIA
     Dosage: 75 MG DAILY PO
     Route: 048
  3. METHOTREXATE [Concomitant]

REACTIONS (4)
  - PHARMACEUTICAL PRODUCT COMPLAINT [None]
  - RASH MACULO-PAPULAR [None]
  - RASH PRURITIC [None]
  - REACTION TO DRUG EXCIPIENTS [None]
